FAERS Safety Report 7970474-8 (Version None)
Quarter: 2011Q4

REPORT INFORMATION
  Report Type: 
  Country: None (occurrence: None)
  Receive Date: 20111212
  Receipt Date: 20111208
  Transmission Date: 20120403
  Serious: Yes (Death, Hospitalization, Other)
  Sender: FDA-Public Use
  Company Number: PHHY2011AU24938

PATIENT
  Sex: Female

DRUGS (1)
  1. CLOZARIL [Suspect]
     Dosage: 200 MG
     Dates: start: 19941129, end: 20111204

REACTIONS (7)
  - LABORATORY TEST ABNORMAL [None]
  - NEUTROPHIL COUNT DECREASED [None]
  - LUNG NEOPLASM MALIGNANT [None]
  - MALAISE [None]
  - CHEST PAIN [None]
  - NEOPLASM MALIGNANT [None]
  - WHITE BLOOD CELL COUNT DECREASED [None]
